FAERS Safety Report 7211991-8 (Version None)
Quarter: 2011Q1

REPORT INFORMATION
  Report Type: 
  Country: None (occurrence: None)
  Receive Date: 20110106
  Receipt Date: 20101227
  Transmission Date: 20110831
  Serious: No
  Sender: FDA-Public Use
  Company Number: US-BIOGENIDEC-2010BI044802

PATIENT
  Age: 45 Year
  Sex: Female

DRUGS (4)
  1. AVONEX [Suspect]
     Route: 030
     Dates: start: 20100101
  2. AVONEX [Suspect]
     Route: 030
     Dates: start: 20100101, end: 20100101
  3. AVONEX [Suspect]
     Indication: MULTIPLE SCLEROSIS
     Route: 030
     Dates: start: 20010501, end: 20030101
  4. AVONEX [Suspect]
     Route: 030
     Dates: start: 20030101, end: 20100101

REACTIONS (4)
  - HYPOAESTHESIA [None]
  - MUSCULOSKELETAL STIFFNESS [None]
  - MUSCLE RIGIDITY [None]
  - BURNING SENSATION [None]
